FAERS Safety Report 5849613-0 (Version None)
Quarter: 2008Q3

REPORT INFORMATION
  Report Type: 
  Country: None (occurrence: None)
  Receive Date: 20080819
  Receipt Date: 20080807
  Transmission Date: 20090109
  Serious: Yes (Other)
  Sender: FDA-Public Use
  Company Number: ES-ROCHE-580150

PATIENT
  Age: 66 Year
  Sex: Female

DRUGS (5)
  1. BONIVA [Suspect]
     Indication: OSTEOPOROSIS
     Dosage: FORM: PREFILLED SYRINGE
     Route: 065
     Dates: start: 20070511, end: 20080522
  2. METAMIZOL [Concomitant]
     Dates: start: 20070101, end: 20080101
  3. ACETYLSALICYLIC ACID SRT [Concomitant]
  4. METFORMIN HCL [Concomitant]
  5. DINISOR [Concomitant]
     Dosage: DRUG NAME REPORTED: DINISOR RETARD; FORM: COATED TABLET

REACTIONS (1)
  - OSTEONECROSIS [None]
